FAERS Safety Report 8822372 (Version 2)
Quarter: 2012Q4

REPORT INFORMATION
  Report Type: 
  Country: NL (occurrence: NL)
  Receive Date: 20121003
  Receipt Date: 20121025
  Transmission Date: 20130627
  Serious: Yes (Hospitalization)
  Sender: FDA-Public Use
  Company Number: PHHY2012NL084892

PATIENT
  Sex: Male
  Weight: 81 kg

DRUGS (5)
  1. ZOMETA [Suspect]
     Indication: PROSTATE CANCER
     Dosage: 4 mg, /100ml once in 28 days
  2. ZOMETA [Suspect]
     Dosage: 4 mg, /100ml once in 28 days
     Dates: start: 20111021
  3. ZOMETA [Suspect]
     Dosage: 4 mg, /100ml once in 28 days
     Dates: start: 20120726
  4. ZOMETA [Suspect]
     Dosage: 4 mg, /100ml once in 28 days
     Dates: start: 20120831
  5. PARACETAMOL [Concomitant]
     Dosage: 5 DF, UNK

REACTIONS (9)
  - General physical health deterioration [Not Recovered/Not Resolved]
  - Anaemia [Not Recovered/Not Resolved]
  - Haemoglobin decreased [Not Recovered/Not Resolved]
  - Pallor [Not Recovered/Not Resolved]
  - Neoplasm progression [Not Recovered/Not Resolved]
  - Malignant neoplasm progression [Not Recovered/Not Resolved]
  - Bone marrow disorder [Not Recovered/Not Resolved]
  - Fatigue [Not Recovered/Not Resolved]
  - Somnolence [Not Recovered/Not Resolved]
